FAERS Safety Report 12695834 (Version 1)
Quarter: 2016Q3

REPORT INFORMATION
  Report Type: Spontaneous
  Country: US (occurrence: US)
  Receive Date: 20160829
  Receipt Date: 20160829
  Transmission Date: 20161109
  Serious: No
  Sender: FDA-Public Use
  Company Number: US-MERZ NORTH AMERICA, INC.-16MRZ-00455

PATIENT
  Sex: Female

DRUGS (2)
  1. NO DRUG NAME [Concomitant]
  2. CUVPOSA [Suspect]
     Active Substance: GLYCOPYRROLATE
     Indication: DROOLING
     Dosage: (1MG/5ML) 3ML PER MOUTH 3 TIMES A DAY
     Dates: start: 20140610

REACTIONS (1)
  - Drooling [Unknown]
